FAERS Safety Report 24641447 (Version 2)
Quarter: 2024Q4

REPORT INFORMATION
  Report Type: Report from Study
  Country: JP (occurrence: JP)
  Receive Date: 20241120
  Receipt Date: 20241218
  Transmission Date: 20250115
  Serious: Yes (Other)
  Sender: ALEXION PHARMACEUTICALS
  Company Number: JP-ASTRAZENECA-230005312_013820_P_1

PATIENT
  Age: 81 Year
  Weight: 44 kg

DRUGS (18)
  1. CALQUENCE [Suspect]
     Active Substance: ACALABRUTINIB
  2. CALQUENCE [Suspect]
     Active Substance: ACALABRUTINIB
     Route: 048
  3. CALQUENCE [Suspect]
     Active Substance: ACALABRUTINIB
  4. CALQUENCE [Suspect]
     Active Substance: ACALABRUTINIB
     Route: 048
  5. CALQUENCE [Suspect]
     Active Substance: ACALABRUTINIB
     Dosage: 100 MILLIGRAM, QD
  6. CALQUENCE [Suspect]
     Active Substance: ACALABRUTINIB
     Dosage: 100 MILLIGRAM, QD
     Route: 048
  7. CALQUENCE [Suspect]
     Active Substance: ACALABRUTINIB
     Dosage: 100 MILLIGRAM, QD
  8. CALQUENCE [Suspect]
     Active Substance: ACALABRUTINIB
     Dosage: 100 MILLIGRAM, QD
     Route: 048
  9. FEBUXOSTAT [Concomitant]
     Active Substance: FEBUXOSTAT
     Indication: Tumour lysis syndrome
     Dosage: NUMBER OF SEPARATE DOSAGES UNKNOWN
     Route: 048
  10. FEBUXOSTAT [Concomitant]
     Active Substance: FEBUXOSTAT
     Dosage: NUMBER OF SEPARATE DOSAGES UNKNOWN
  11. REBAMIPIDE [Concomitant]
     Active Substance: REBAMIPIDE
     Dosage: NUMBER OF SEPARATE DOSAGES UNKNOWN
     Route: 048
  12. REBAMIPIDE [Concomitant]
     Active Substance: REBAMIPIDE
     Dosage: NUMBER OF SEPARATE DOSAGES UNKNOWN
  13. EVUSHELD [Concomitant]
     Active Substance: CILGAVIMAB\TIXAGEVIMAB
     Indication: Infection prophylaxis
     Dosage: NUMBER OF SEPARATE DOSAGES UNKNOWN
     Route: 030
  14. EVUSHELD [Concomitant]
     Active Substance: CILGAVIMAB\TIXAGEVIMAB
     Dosage: NUMBER OF SEPARATE DOSAGES UNKNOWN
  15. TRICHLORMETHIAZIDE [Concomitant]
     Active Substance: TRICHLORMETHIAZIDE
     Indication: Tumour lysis syndrome
     Dosage: NUMBER OF SEPARATE DOSAGES UNKNOWN
     Route: 048
  16. TRICHLORMETHIAZIDE [Concomitant]
     Active Substance: TRICHLORMETHIAZIDE
     Dosage: NUMBER OF SEPARATE DOSAGES UNKNOWN
  17. NIFEDIPINE [Concomitant]
     Active Substance: NIFEDIPINE
     Dosage: NUMBER OF SEPARATE DOSAGES UNKNOWN
     Route: 048
  18. NIFEDIPINE [Concomitant]
     Active Substance: NIFEDIPINE
     Dosage: NUMBER OF SEPARATE DOSAGES UNKNOWN

REACTIONS (8)
  - White blood cell count increased [Recovering/Resolving]
  - Petechiae [Recovering/Resolving]
  - Pruritus [Recovering/Resolving]
  - Musculoskeletal stiffness [Recovered/Resolved]
  - Myalgia [Recovered/Resolved]
  - Cellulitis [Recovering/Resolving]
  - Insomnia [Recovering/Resolving]
  - Contusion [Recovering/Resolving]
